FAERS Safety Report 6231352-8 (Version None)
Quarter: 2009Q2

REPORT INFORMATION
  Report Type: 
  Country: None (occurrence: None)
  Receive Date: 20090616
  Receipt Date: 20090608
  Transmission Date: 20091009
  Serious: Yes (Other)
  Sender: FDA-Public Use
  Company Number: US-BAYER-200911726BCC

PATIENT
  Age: 78 Year
  Sex: Male

DRUGS (2)
  1. ASPIRIN [Suspect]
     Indication: DRUG USE FOR UNKNOWN INDICATION
  2. PLAVIX [Suspect]
     Indication: TRANSIENT ISCHAEMIC ATTACK
     Dosage: UNIT DOSE: 75 MG
     Route: 048

REACTIONS (5)
  - ANOREXIA [None]
  - FEELING ABNORMAL [None]
  - POST PROCEDURAL HAEMORRHAGE [None]
  - THROAT IRRITATION [None]
  - WEIGHT DECREASED [None]
